FAERS Safety Report 7336280-2 (Version None)
Quarter: 2011Q1

REPORT INFORMATION
  Report Type: 
  Country: None (occurrence: None)
  Receive Date: 20110307
  Receipt Date: 20110224
  Transmission Date: 20110831
  Serious: Yes (Hospitalization)
  Sender: FDA-Public Use
  Company Number: FR-ACTELION-A-CH2010-42108

PATIENT
  Sex: Female
  Weight: 7.5 kg

DRUGS (5)
  1. TRACLEER [Suspect]
     Dosage: 8 MG, BID
     Route: 048
     Dates: start: 20101020
  2. TRACLEER [Suspect]
     Indication: PULMONARY ARTERIAL HYPERTENSION
     Dosage: 16 MG, BID
     Route: 048
     Dates: start: 20101003, end: 20101019
  3. ALDACTONE [Concomitant]
  4. TRACLEER [Suspect]
     Dosage: 8 MG, BID
     Route: 048
     Dates: start: 20100930, end: 20101002
  5. LASIX [Concomitant]

REACTIONS (14)
  - GASTROINTESTINAL DISORDER [None]
  - CYTOLYTIC HEPATITIS [None]
  - TRANSFUSION [None]
  - RESPIRATORY DISORDER [None]
  - THROMBOCYTOPENIA [None]
  - ALANINE AMINOTRANSFERASE INCREASED [None]
  - CYTOMEGALOVIRUS INFECTION [None]
  - IRON DEFICIENCY [None]
  - MEAN CELL VOLUME ABNORMAL [None]
  - GENERAL PHYSICAL HEALTH DETERIORATION [None]
  - TRANSAMINASES INCREASED [None]
  - ANAEMIA [None]
  - ASPARTATE AMINOTRANSFERASE INCREASED [None]
  - PYREXIA [None]
